FAERS Safety Report 19986909 (Version 11)
Quarter: 2025Q2

REPORT INFORMATION
  Report Type: Report from Study
  Country: DE (occurrence: DE)
  Receive Date: 20211022
  Receipt Date: 20250528
  Transmission Date: 20250716
  Serious: Yes (Hospitalization, Other)
  Sender: NOVARTIS
  Company Number: DE-NOVARTISPH-NVSC2021DE234621

PATIENT
  Age: 81 Year
  Sex: Male
  Weight: 89 kg

DRUGS (19)
  1. COSENTYX [Suspect]
     Active Substance: SECUKINUMAB
     Indication: Psoriasis
     Dosage: 300 MG, QMO( 2 X 150MG)
     Route: 058
     Dates: start: 20151001
  2. COSENTYX [Suspect]
     Active Substance: SECUKINUMAB
  3. METOPROLOL [Concomitant]
     Active Substance: METOPROLOL
     Indication: Product used for unknown indication
     Dosage: 47.5 MG, BID (1.5-0-1.0)
     Route: 065
     Dates: start: 20200723
  4. VALSARTAN [Concomitant]
     Active Substance: VALSARTAN
     Indication: Product used for unknown indication
     Dosage: 160 MG, BID (1-0-0.5)
     Route: 065
     Dates: start: 20200624
  5. VALSARTAN [Concomitant]
     Active Substance: VALSARTAN
     Dosage: UNK, QD
     Route: 065
  6. EZETIMIBE\ROSUVASTATIN [Concomitant]
     Active Substance: EZETIMIBE\ROSUVASTATIN
     Indication: Product used for unknown indication
     Dosage: UNK UNK, QD (10/10)
     Route: 048
     Dates: start: 201901
  7. FERROUS GLYCINE SULFATE [Concomitant]
     Active Substance: FERROUS GLYCINE SULFATE
     Indication: Product used for unknown indication
     Dosage: 100 MG, QD
     Route: 048
  8. FERROUS GLYCINE SULFATE [Concomitant]
     Active Substance: FERROUS GLYCINE SULFATE
     Dosage: 5 MG, QD
     Route: 048
     Dates: start: 20210725
  9. FOLIC ACID [Concomitant]
     Active Substance: FOLIC ACID
     Indication: Product used for unknown indication
     Dosage: 5 MG, QD
     Route: 048
     Dates: start: 20210725
  10. LEVOTHYROXINE SODIUM [Concomitant]
     Active Substance: LEVOTHYROXINE SODIUM
     Indication: Product used for unknown indication
     Dosage: UNK, QD
     Route: 065
     Dates: start: 20210725
  11. LEVOTHYROXINE SODIUM [Concomitant]
     Active Substance: LEVOTHYROXINE SODIUM
     Dosage: 100 MG, QD
     Route: 065
  12. ELIQUIS [Concomitant]
     Active Substance: APIXABAN
     Indication: Product used for unknown indication
     Dosage: UNK, BID
     Route: 065
     Dates: end: 20240902
  13. FERROUS GLYCINE SULFATE [Concomitant]
     Active Substance: FERROUS GLYCINE SULFATE
     Indication: Product used for unknown indication
     Dosage: UNK, QD
     Route: 065
  14. METOPROLOL [Concomitant]
     Active Substance: METOPROLOL
     Indication: Product used for unknown indication
     Route: 065
  15. AMLODIPINE [Concomitant]
     Active Substance: AMLODIPINE BESYLATE
     Indication: Product used for unknown indication
     Dosage: UNK, QD
     Route: 065
  16. EZETIMIBE\ROSUVASTATIN [Concomitant]
     Active Substance: EZETIMIBE\ROSUVASTATIN
     Indication: Product used for unknown indication
     Dosage: UNK, QD (10/10)
     Route: 065
  17. PREGABALIN [Concomitant]
     Active Substance: PREGABALIN
     Indication: Product used for unknown indication
     Route: 065
  18. QUININE SULFATE [Concomitant]
     Active Substance: QUININE SULFATE
     Indication: Product used for unknown indication
     Dosage: UNK, QD
     Route: 065
  19. TRAMADOL [Concomitant]
     Active Substance: TRAMADOL
     Indication: Product used for unknown indication
     Dosage: UNK, BID (1-0-1, AS NEEDED)
     Route: 065

REACTIONS (37)
  - Adenoma benign [Recovered/Resolved]
  - Dysplasia [Recovered/Resolved]
  - Large intestine polyp [Recovered/Resolved]
  - Angiodysplasia [Recovered/Resolved]
  - Haemorrhoids [Recovered/Resolved]
  - Colitis [Recovered/Resolved]
  - Adenoma benign [Recovered/Resolved]
  - Large intestine polyp [Recovered/Resolved]
  - Angiodysplasia [Recovered/Resolved]
  - Hyperthyroidism [Recovered/Resolved]
  - Hyperthyroidism [Unknown]
  - Atrial fibrillation [Unknown]
  - Aortic arteriosclerosis [Recovered/Resolved]
  - Glaucoma [Unknown]
  - Secondary hyperthyroidism [Unknown]
  - Inflammatory bowel disease [Unknown]
  - Enterocolitis [Recovered/Resolved]
  - Colorectal adenoma [Recovered/Resolved]
  - Large intestine polyp [Recovered/Resolved]
  - Colorectal adenoma [Unknown]
  - Large intestine polyp [Recovered/Resolved]
  - Iron deficiency [Recovered/Resolved]
  - Anaemia [Not Recovered/Not Resolved]
  - Hypertension [Unknown]
  - Hyperlipidaemia [Unknown]
  - Renal cyst [Recovered/Resolved]
  - Hepatic steatosis [Recovered/Resolved]
  - Prostatomegaly [Unknown]
  - Iron deficiency [Unknown]
  - Renal cyst [Unknown]
  - Folate deficiency [Unknown]
  - Folate deficiency [Recovered/Resolved]
  - Colorectal adenoma [Recovered/Resolved]
  - Colorectal adenoma [Recovered/Resolved]
  - Benign prostatic hyperplasia [Recovered/Resolved]
  - Hepatic steatosis [Not Recovered/Not Resolved]
  - COVID-19 [Recovered/Resolved]

NARRATIVE: CASE EVENT DATE: 20170115
